FAERS Safety Report 5293694-2 (Version None)
Quarter: 2007Q2

REPORT INFORMATION
  Report Type: 
  Country: None (occurrence: None)
  Receive Date: 20070411
  Receipt Date: 20070404
  Transmission Date: 20071010
  Serious: Yes (Hospitalization)
  Sender: FDA-Public Use
  Company Number: US-SHR-US-2007-003411

PATIENT
  Age: 40 Year
  Sex: Female

DRUGS (6)
  1. CAMPATH [Suspect]
     Dosage: 3 MG, 1 DOSE
     Route: 058
     Dates: start: 20061223, end: 20061223
  2. CAMPATH [Suspect]
     Dosage: 10 MG, 1 DOSE
     Route: 058
     Dates: start: 20061226, end: 20061226
  3. CAMPATH [Suspect]
     Dosage: 30 MG, 3X/WEEK
     Route: 058
     Dates: start: 20061228, end: 20070124
  4. BENADRYL ^PFIZER WARNER-LAMBERT^ [Concomitant]
     Indication: PREMEDICATION
     Dates: start: 20061223, end: 20070124
  5. DECADRON                                /CAN/ [Concomitant]
     Indication: PREMEDICATION
     Dates: start: 20061223, end: 20070124
  6. FAMVIR                                  /UNK/ [Concomitant]
     Indication: INFECTION PROPHYLAXIS
     Dosage: UNK, UNK
     Route: 048
     Dates: start: 20061223

REACTIONS (1)
  - PSYCHOTIC DISORDER [None]
